FAERS Safety Report 6240142-1 (Version None)
Quarter: 2009Q2

REPORT INFORMATION
  Report Type: 
  Country: None (occurrence: None)
  Receive Date: 20090618
  Receipt Date: 20090618
  Transmission Date: 20091009
  Serious: Yes (Other)
  Sender: FDA-Public Use
  Company Number: None

PATIENT
  Age: 26 Year
  Sex: Female
  Weight: 90.7194 kg

DRUGS (1)
  1. CYMBALTA [Suspect]
     Dates: start: 20090529, end: 20090617

REACTIONS (5)
  - DEPRESSION [None]
  - FATIGUE [None]
  - HEART RATE INCREASED [None]
  - HYPERTENSION [None]
  - WITHDRAWAL SYNDROME [None]
